FAERS Safety Report 8115341-4 (Version None)
Quarter: 2012Q1

REPORT INFORMATION
  Report Type: 
  Country: None (occurrence: None)
  Receive Date: 20120206
  Receipt Date: 20120206
  Transmission Date: 20120608
  Serious: Yes (Hospitalization)
  Sender: FDA-Public Use
  Company Number: None

PATIENT
  Age: 74 Year
  Sex: Male
  Weight: 82 kg

DRUGS (1)
  1. OMNIPAQUE 140 [Suspect]

REACTIONS (4)
  - DYSPNOEA [None]
  - URTICARIA [None]
  - ABDOMINAL PAIN [None]
  - DOCUMENTED HYPERSENSITIVITY TO ADMINISTERED DRUG [None]
